FAERS Safety Report 4609571-3 (Version None)
Quarter: 2005Q1

REPORT INFORMATION
  Report Type: 
  Country: None (occurrence: None)
  Receive Date: 20050314
  Receipt Date: 20050314
  Transmission Date: 20050727
  Serious: Yes (Other)
  Sender: FDA-Public Use
  Company Number: None

PATIENT
  Sex: Female
  Weight: 58 kg

DRUGS (3)
  1. ETOPOSIDE [Suspect]
     Dosage: SEE IMAGE
     Route: 003
     Dates: start: 20040810
  2. CYTARABINE [Suspect]
     Dosage: SEE IMAGE
     Route: 042
     Dates: start: 20040810, end: 20041107
  3. G-CSF [Suspect]
     Dosage: SEE IMAGE
     Route: 058
     Dates: start: 20040810

REACTIONS (16)
  - CARDIAC FAILURE [None]
  - DILATATION VENTRICULAR [None]
  - DRUG TOXICITY [None]
  - DYSPNOEA [None]
  - DYSPNOEA EXERTIONAL [None]
  - EJECTION FRACTION DECREASED [None]
  - ENTEROCOCCAL INFECTION [None]
  - FATIGUE [None]
  - GALLOP RHYTHM PRESENT [None]
  - LIVER FUNCTION TEST ABNORMAL [None]
  - MYOCARDIAL FIBROSIS [None]
  - NUCLEAR MAGNETIC RESONANCE IMAGING ABNORMAL [None]
  - ORTHOPNOEA [None]
  - PERICARDIAL EFFUSION [None]
  - URINARY TRACT INFECTION [None]
  - VENTRICULAR DYSFUNCTION [None]
